FAERS Safety Report 6007692-4 (Version None)
Quarter: 2008Q4

REPORT INFORMATION
  Report Type: 
  Country: None (occurrence: None)
  Receive Date: 20081217
  Receipt Date: 20080407
  Transmission Date: 20090506
  Serious: No
  Sender: FDA-Public Use
  Company Number: US-ASTRAZENECA-2008UW06944

PATIENT
  Age: 77 Year
  Sex: Female
  Weight: 46.7 kg

DRUGS (2)
  1. CRESTOR [Suspect]
     Indication: BLOOD CHOLESTEROL INCREASED
     Route: 048
  2. SYNTHROID [Concomitant]

REACTIONS (3)
  - BLEPHAROSPASM [None]
  - FLATULENCE [None]
  - MYALGIA [None]
